FAERS Safety Report 23554250 (Version 1)
Quarter: 2024Q1

REPORT INFORMATION
  Report Type: Spontaneous
  Country: DE (occurrence: DE)
  Receive Date: 20240222
  Receipt Date: 20240222
  Transmission Date: 20240410
  Serious: Yes (Other)
  Sender: FDA-Public Use
  Company Number: DE-TEVA-VS-3145730

PATIENT
  Age: 64 Year
  Sex: Male

DRUGS (1)
  1. IRBESARTAN [Suspect]
     Active Substance: IRBESARTAN
     Indication: Product used for unknown indication
     Dosage: APPROXIMATELY 3 YEARS, DRUG DOSAGE: 150MG DIVIDED INTO 75MG PER DAY
     Route: 048
     Dates: start: 2021

REACTIONS (4)
  - Arrhythmia [Unknown]
  - Visual impairment [Unknown]
  - Sensory disturbance [Unknown]
  - Dyspepsia [Unknown]
